FAERS Safety Report 6150299-9 (Version None)
Quarter: 2009Q2

REPORT INFORMATION
  Report Type: 
  Country: None (occurrence: None)
  Receive Date: 20090408
  Receipt Date: 20090408
  Transmission Date: 20091009
  Serious: Yes (Death)
  Sender: FDA-Public Use
  Company Number: None

PATIENT
  Age: 52 Year
  Sex: Female
  Weight: 136.9863 kg

DRUGS (1)
  1. DIGOXIN [Suspect]
     Dosage: 1 BY MOUTH DAILY
     Dates: start: 20080313, end: 20081123

REACTIONS (6)
  - BEDRIDDEN [None]
  - CONVULSION [None]
  - DIZZINESS [None]
  - FALL [None]
  - NAUSEA [None]
  - VOMITING [None]
